FAERS Safety Report 13918080 (Version 1)
Quarter: 2017Q3

REPORT INFORMATION
  Report Type: Spontaneous
  Country: IT (occurrence: IT)
  Receive Date: 20170829
  Receipt Date: 20170829
  Transmission Date: 20171127
  Serious: Yes (Life-Threatening, Hospitalization, Other)
  Sender: FDA-Public Use
  Company Number: IT-BAYER-2017-127484

PATIENT
  Age: 62 Year
  Sex: Male

DRUGS (6)
  1. CIPROFLOXACIN. [Suspect]
     Active Substance: CIPROFLOXACIN
     Indication: ANTIBIOTIC PROPHYLAXIS
     Dosage: UNK
     Dates: start: 201604, end: 201604
  2. METRONIDAZOLE. [Suspect]
     Active Substance: METRONIDAZOLE
     Indication: CLOSTRIDIUM DIFFICILE COLITIS
     Dosage: 500 MG, QID
     Route: 048
     Dates: start: 201605, end: 201605
  3. TIGECYCLINE. [Concomitant]
     Active Substance: TIGECYCLINE
     Dosage: 50 MG, BID
  4. CEFTAZIDIME. [Suspect]
     Active Substance: CEFTAZIDIME
     Indication: PROPHYLAXIS URINARY TRACT INFECTION
     Dosage: UNK
     Dates: start: 201604, end: 201604
  5. VANCOMYCIN [Concomitant]
     Active Substance: VANCOMYCIN
     Dosage: 250 MG, QID
     Route: 048
  6. FIDAXOMICIN [Concomitant]
     Active Substance: FIDAXOMICIN
     Dosage: 200 MG, BID

REACTIONS (10)
  - Clostridium difficile infection [Recovered/Resolved]
  - Listeriosis [Recovered/Resolved]
  - Meningitis [Recovered/Resolved]
  - Bacteraemia [Recovered/Resolved]
  - Off label use [None]
  - Septic shock [Recovered/Resolved]
  - Coma [Recovered/Resolved]
  - Pseudomembranous colitis [Recovered/Resolved]
  - Product use in unapproved indication [None]
  - Diarrhoea [Recovered/Resolved]

NARRATIVE: CASE EVENT DATE: 2016
